FAERS Safety Report 5982237-3 (Version None)
Quarter: 2008Q4

REPORT INFORMATION
  Report Type: 
  Country: None (occurrence: None)
  Receive Date: 20081208
  Receipt Date: 20081126
  Transmission Date: 20090506
  Serious: Yes (Other)
  Sender: FDA-Public Use
  Company Number: US-JNJFOC-20081200661

PATIENT
  Age: 20 Year
  Sex: Male

DRUGS (1)
  1. TYLENOL COUGH AND SORE THROAT DAYTIME COOL BURST BERRY [Suspect]
     Indication: NASOPHARYNGITIS
     Route: 048

REACTIONS (3)
  - HYPERSENSITIVITY [None]
  - RESPIRATORY DISTRESS [None]
  - URTICARIA [None]
